FAERS Safety Report 5230162-8 (Version None)
Quarter: 2007Q1

REPORT INFORMATION
  Report Type: 
  Country: None (occurrence: None)
  Receive Date: 20070206
  Receipt Date: 20061016
  Transmission Date: 20070707
  Serious: No
  Sender: FDA-Public Use
  Company Number: US-GLAXOSMITHKLINE-A0620196A

PATIENT
  Age: 53 Year
  Sex: Female
  Weight: 109.5 kg

DRUGS (33)
  1. PAXIL CR [Suspect]
     Indication: DEPRESSION
     Dosage: 37.5MG PER DAY
     Route: 048
     Dates: start: 20050101
  2. FUROSEMIDE [Concomitant]
  3. LISINOPRIL [Concomitant]
  4. ALLEGRA [Concomitant]
  5. TIAZAC [Concomitant]
  6. LEVOTHYROXINE SODIUM [Concomitant]
  7. K-DUR 10 [Concomitant]
  8. TRAZODONE HCL [Concomitant]
  9. ULTRAM [Concomitant]
  10. FLEXERIL [Concomitant]
  11. VYTORIN [Concomitant]
     Dates: end: 20060701
  12. DARVOCET [Concomitant]
  13. PRILOSEC [Concomitant]
  14. FLONASE [Concomitant]
  15. AMBIEN [Concomitant]
  16. LIPITOR [Concomitant]
     Dates: start: 20060701
  17. PAROXETINE HCL [Concomitant]
     Dosage: 40MG PER DAY
  18. ALBUTEROL [Concomitant]
  19. PSYLLIUM FIBER [Concomitant]
  20. MYCOLOG [Concomitant]
  21. ASPIRIN [Concomitant]
  22. POTASSIUM CHLORIDE [Concomitant]
  23. LASIX [Concomitant]
  24. DILTIAZEM [Concomitant]
  25. ASCORBIC ACID [Concomitant]
  26. DESYREL [Concomitant]
  27. OMEPRAZOLE [Concomitant]
  28. NYSTATIN-TRIAMCINOLONE ACETONIDE [Concomitant]
  29. CENTRUM [Concomitant]
  30. CALTRATE [Concomitant]
  31. TYLENOL [Concomitant]
  32. VITAMIN E [Concomitant]
  33. CALCIUM [Concomitant]

REACTIONS (3)
  - FATIGUE [None]
  - MALAISE [None]
  - PHARMACEUTICAL PRODUCT COMPLAINT [None]
